FAERS Safety Report 8649742 (Version 5)
Quarter: 2012Q4

REPORT INFORMATION
  Report Type: Report from Study
  Country: US (occurrence: US)
  Receive Date: 20120705
  Receipt Date: 20120914
  Transmission Date: 20130627
  Serious: Yes (Death, Hospitalization, Other)
  Sender: FDA-Public Use
  Company Number: US-ASTELLAS-2012US005006

PATIENT
  Age: 78 Year
  Sex: Female
  Weight: 40 kg

DRUGS (20)
  1. ERLOTINIB TABLET [Suspect]
     Indication: NON-SMALL CELL LUNG CANCER METASTATIC
     Dosage: 150 mg, UID/QD
     Route: 048
     Dates: start: 20120504, end: 20120625
  2. DASATINIB [Suspect]
     Indication: NON-SMALL CELL LUNG CANCER METASTATIC
     Dosage: 50 mg, UID/QD
     Route: 048
     Dates: start: 20120504, end: 20120625
  3. DASATINIB [Suspect]
     Dosage: 20 mg, UID/QD
     Route: 048
     Dates: start: 20120504, end: 20120625
  4. ADVAIR [Concomitant]
     Indication: PRODUCT USED FOR UNKNOWN INDICATION
     Dosage: 1 puff, prn
     Route: 055
     Dates: start: 20120425
  5. ALBUTEROL [Concomitant]
     Indication: PRODUCT USED FOR UNKNOWN INDICATION
     Dosage: 1 puff, prn
     Route: 065
     Dates: start: 20120425
  6. ATORVASTATIN CALCIUM [Concomitant]
     Indication: BLOOD CHOLESTEROL
     Dosage: 20 mg, UID/QD
     Route: 048
     Dates: start: 20120322
  7. BENZONATATE [Concomitant]
     Indication: COUGH
     Dosage: 100 mg, tid
     Route: 048
     Dates: start: 20120504
  8. GABAPENTIN [Concomitant]
     Indication: PAIN
     Dosage: 300 mg, Q6 hours
     Route: 048
  9. GEMFIBROZIL [Concomitant]
     Indication: DIABETES MELLITUS
     Dosage: 600 mg, bid
     Route: 048
     Dates: start: 20120322
  10. HYDROCODONE/ACETAMINOPHEN [Concomitant]
     Indication: PAIN
     Dosage: 10/325 mg, Q4H while awake
     Route: 048
  11. LEVOTHYROXINE [Concomitant]
     Indication: THYROID THERAPY
     Dosage: 125 ug, UID/QD
     Route: 048
     Dates: start: 20120322
  12. LOSARTAN/HYDROCHLOORTHIAZIDE [Concomitant]
     Indication: BLOOD PRESSURE
     Dosage: 12.5/50 mg, UID/QD
     Route: 048
     Dates: start: 20120322
  13. METFORMIN HCL [Concomitant]
     Indication: DIABETES MELLITUS
     Dosage: 1000 mg, bid
     Route: 048
     Dates: start: 20120322, end: 201206
  14. METOCLOPRAMIDE [Concomitant]
     Indication: APPETITE DISORDER
     Dosage: 10 mg, before meals and at bedtime
     Route: 048
  15. METOCLOPRAMIDE [Concomitant]
     Indication: NAUSEA
  16. SENNA [Concomitant]
     Indication: CONSTIPATION
     Dosage: 1-4 tablets, bid
     Route: 048
  17. XYLOXYLIN [Concomitant]
     Indication: OROPHARYNGEAL PAIN
     Dosage: 15 ml, before meals and at bedtime
     Route: 048
     Dates: start: 20120409
  18. ZOFRAN ODT [Concomitant]
     Indication: NAUSEA
     Dosage: 8 mg, QID prn
     Route: 048
     Dates: start: 20120511
  19. ZOFRAN ODT [Concomitant]
     Indication: VOMITING
  20. IRON [Concomitant]
     Indication: PRODUCT USED FOR UNKNOWN INDICATION
     Dosage: 1 DF, bid
     Dates: start: 20120619

REACTIONS (20)
  - Staphylococcal sepsis [Fatal]
  - Hyponatraemia [Recovering/Resolving]
  - Mental status changes [Not Recovered/Not Resolved]
  - Anaemia [Not Recovered/Not Resolved]
  - Failure to thrive [Not Recovered/Not Resolved]
  - Colitis [Not Recovered/Not Resolved]
  - Ileus [Not Recovered/Not Resolved]
  - Hyperkalaemia [Recovered/Resolved]
  - Hypocalcaemia [Recovered/Resolved]
  - Pneumonia [Not Recovered/Not Resolved]
  - Gastrointestinal haemorrhage [Recovered/Resolved]
  - Acute prerenal failure [Recovered/Resolved]
  - Urinary tract infection [Not Recovered/Not Resolved]
  - Renal failure [Recovered/Resolved]
  - Dehydration [Recovered/Resolved]
  - Diarrhoea [Not Recovered/Not Resolved]
  - Dyspnoea [Unknown]
  - Decreased appetite [Unknown]
  - Pneumothorax [Not Recovered/Not Resolved]
  - Malignant pleural effusion [Not Recovered/Not Resolved]
